FAERS Safety Report 6714142-9 (Version None)
Quarter: 2010Q2

REPORT INFORMATION
  Report Type: 
  Country: None (occurrence: None)
  Receive Date: 20100506
  Receipt Date: 20100401
  Transmission Date: 20101027
  Serious: Yes (Death, Other)
  Sender: FDA-Public Use
  Company Number: TR-PFIZER INC-2010041602

PATIENT
  Age: 48 Year
  Sex: Female

DRUGS (2)
  1. SUTENT [Suspect]
     Dosage: 50 MG, 1X/DAY
     Dates: start: 20080801
  2. SUTENT [Suspect]
     Dosage: 37.5 MG, 1X/DAY
     Dates: end: 20090801

REACTIONS (4)
  - DEATH [None]
  - DIARRHOEA [None]
  - NAUSEA [None]
  - SKIN REACTION [None]
